FAERS Safety Report 8183442-0 (Version None)
Quarter: 2012Q1

REPORT INFORMATION
  Report Type: 
  Country: None (occurrence: None)
  Receive Date: 20120201
  Receipt Date: 20110909
  Transmission Date: 20120608
  Serious: Yes (Other)
  Sender: FDA-Public Use
  Company Number: 298840USA

PATIENT
  Age: 24 Year
  Sex: Female

DRUGS (1)
  1. ANTABUSE [Suspect]
     Dosage: 500 MG (250 MG, 2 IN 1 D)
     Dates: start: 20110825

REACTIONS (3)
  - BLOOD ALCOHOL INCREASED [None]
  - LOSS OF CONSCIOUSNESS [None]
  - DRUG INEFFECTIVE [None]
